FAERS Safety Report 11467199 (Version 1)
Quarter: 2015Q3

REPORT INFORMATION
  Report Type: Spontaneous
  Country: FR (occurrence: FR)
  Receive Date: 20150908
  Receipt Date: 20150908
  Transmission Date: 20151125
  Serious: Yes (Hospitalization, Other)
  Sender: FDA-Public Use
  Company Number: FR-ACCORD-033562

PATIENT
  Age: 71 Year
  Sex: Male

DRUGS (5)
  1. METHYLPREDNISOLONE MYLAN [Suspect]
     Active Substance: METHYLPREDNISOLONE
     Indication: MALIGNANT NEOPLASM OF AMPULLA OF VATER
     Dosage: STRENGTH: 40 MG
     Route: 042
     Dates: start: 20150701, end: 20150701
  2. MAGNESIUM SULFATE. [Concomitant]
     Active Substance: MAGNESIUM SULFATE
     Dates: start: 20150701, end: 20150701
  3. OXALIPLATIN ACCORD [Suspect]
     Active Substance: OXALIPLATIN
     Indication: MALIGNANT NEOPLASM OF AMPULLA OF VATER
     Dosage: STRENGTH : 5 MG/ML, ROUTE: INTRAVENOUS (INFUSION)
     Route: 042
     Dates: start: 20150701, end: 20150701
  4. GEMCITABINE/GEMCITABINE HYDROCHLORIDE [Suspect]
     Active Substance: GEMCITABINE\GEMCITABINE HYDROCHLORIDE
     Indication: MALIGNANT NEOPLASM OF AMPULLA OF VATER
     Dates: start: 20150630
  5. CALCIUM GLUCONATE. [Concomitant]
     Active Substance: CALCIUM GLUCONATE
     Dosage: STRENGTH: 10 %
     Dates: start: 20150701, end: 20150701

REACTIONS (4)
  - Hypotension [Recovered/Resolved]
  - Feeling hot [Recovered/Resolved]
  - Bradycardia [Recovered/Resolved]
  - Off label use [Unknown]

NARRATIVE: CASE EVENT DATE: 20150701
